FAERS Safety Report 9827995 (Version 1)
Quarter: 2013Q4

REPORT INFORMATION
  Report Type: Spontaneous
  Country: US (occurrence: None)
  Receive Date: 20131120
  Receipt Date: 20131120
  Transmission Date: 20140711
  Serious: Yes (Other)
  Sender: FDA-Public Use
  Company Number: ACC420120002

PATIENT
  Sex: Male

DRUGS (2)
  1. PARACETAMOL AND CODEINE [Suspect]
     Indication: DRUG ABUSE
     Route: 048
  2. MORPHINE SULFATE ER [Suspect]
     Indication: DRUG ABUSE
     Route: 048

REACTIONS (2)
  - Drug abuse [None]
  - Hypertension [None]
